FAERS Safety Report 8801824 (Version 2)
Quarter: 2012Q4

REPORT INFORMATION
  Report Type: 
  Country: US (occurrence: US)
  Receive Date: 20120921
  Receipt Date: 20121016
  Transmission Date: 20130627
  Serious: No
  Sender: FDA-Public Use
  Company Number: US-PFIZER INC-2012231589

PATIENT
  Age: 85 Year
  Sex: Female
  Weight: 48.98 kg

DRUGS (5)
  1. LIPITOR [Suspect]
     Indication: CARDIAC DISORDER
     Dosage: 40 mg, once daily
     Route: 048
     Dates: start: 2001, end: 20120915
  2. SINGULAIR [Suspect]
     Dosage: UNK
  3. PLAVIX [Suspect]
     Indication: CARDIAC DISORDER
     Dosage: UNK
  4. SYMBICORT [Suspect]
     Dosage: UNK
  5. LOVAZA [Suspect]
     Dosage: UNK

REACTIONS (6)
  - Abdominal discomfort [Unknown]
  - Nausea [Unknown]
  - Vomiting [Unknown]
  - Diarrhoea [Unknown]
  - Malaise [Unknown]
  - Withdrawal syndrome [Unknown]
